FAERS Safety Report 8259527-7 (Version None)
Quarter: 2012Q2

REPORT INFORMATION
  Report Type: 
  Country: None (occurrence: None)
  Receive Date: 20120404
  Receipt Date: 20120323
  Transmission Date: 20120825
  Serious: Yes (Other)
  Sender: FDA-Public Use
  Company Number: US-MERCK-1201USA02686

PATIENT
  Age: 67 Year
  Sex: Female
  Weight: 54 kg

DRUGS (4)
  1. FOSAMAX [Suspect]
     Route: 048
  2. ACTON [Concomitant]
     Indication: OSTEOPOROSIS
     Route: 065
  3. ACTONEL [Concomitant]
     Route: 065
  4. BONIVA [Concomitant]
     Indication: OSTEOPOROSIS
     Route: 065

REACTIONS (2)
  - ABDOMINAL SYMPTOM [None]
  - HYPERTENSIVE CRISIS [None]
